FAERS Safety Report 4527013-3 (Version None)
Quarter: 2004Q4

REPORT INFORMATION
  Report Type: 
  Country: None (occurrence: None)
  Receive Date: 20041213
  Receipt Date: 20041130
  Transmission Date: 20050328
  Serious: Yes (Hospitalization)
  Sender: FDA-Public Use
  Company Number: 2004084199

PATIENT
  Sex: 0

DRUGS (2)
  1. PHENYTOIN SODIUM [Suspect]
     Indication: ILL-DEFINED DISORDER
  2. PHENOBARBITAL TAB [Concomitant]

REACTIONS (1)
  - GASTROINTESTINAL DISORDER [None]
